FAERS Safety Report 15040913 (Version 4)
Quarter: 2018Q3

REPORT INFORMATION
  Report Type: Spontaneous
  Country: US (occurrence: US)
  Receive Date: 20180620
  Receipt Date: 20180703
  Transmission Date: 20181010
  Serious: Yes (Hospitalization)
  Sender: FDA-Public Use
  Company Number: US-BIOGEN-2018BI00595391

PATIENT
  Sex: Female

DRUGS (1)
  1. TYSABRI [Suspect]
     Active Substance: NATALIZUMAB
     Indication: MULTIPLE SCLEROSIS
     Route: 065
     Dates: start: 20150903

REACTIONS (5)
  - Multiple sclerosis relapse [Unknown]
  - Nausea [Unknown]
  - Musculoskeletal pain [Unknown]
  - Tooth loss [Unknown]
  - Pain in extremity [Unknown]
